FAERS Safety Report 5571427-X (Version None)
Quarter: 2007Q4

REPORT INFORMATION
  Report Type: 
  Country: None (occurrence: None)
  Receive Date: 20071219
  Receipt Date: 20071206
  Transmission Date: 20080405
  Serious: Yes (Other)
  Sender: FDA-Public Use
  Company Number: US-JNJFOC-20071103477

PATIENT
  Age: 79 Year
  Sex: Male

DRUGS (1)
  1. DACOGEN [Suspect]
     Indication: MYELODYSPLASTIC SYNDROME
     Dosage: 32 MG, 1 IN 1 DAY, INTRAVENOUS
     Route: 042
     Dates: start: 20071105, end: 20071109

REACTIONS (1)
  - PLATELET COUNT INCREASED [None]
